FAERS Safety Report 19158220 (Version 1)
Quarter: 2021Q2

REPORT INFORMATION
  Report Type: Report from Study
  Country: CZ (occurrence: CZ)
  Receive Date: 20210420
  Receipt Date: 20210420
  Transmission Date: 20210717
  Serious: Yes (Hospitalization)
  Sender: FDA-Public Use
  Company Number: CZ-MYLANLABS-2021M1022863

PATIENT
  Sex: Female

DRUGS (4)
  1. METHYLPREDNISOLON                  /00049601/ [Concomitant]
     Active Substance: METHYLPREDNISOLONE
     Dosage: 2 MILLIGRAM, QD
     Dates: start: 20201216
  2. HULIO [Suspect]
     Active Substance: ADALIMUMAB-FKJP
     Indication: PRODUCT USED FOR UNKNOWN INDICATION
     Dosage: 40 MILLIGRAM, BIMONTHLY
     Route: 058
     Dates: start: 20200303
  3. METHOTREXATE. [Concomitant]
     Active Substance: METHOTREXATE
     Dosage: 15 MILLIGRAM, QW
  4. METHYLPREDNISOLON                  /00049601/ [Concomitant]
     Active Substance: METHYLPREDNISOLONE
     Dosage: 4 MILLIGRAM, QD
     Dates: end: 20201215

REACTIONS (3)
  - Infection [Recovered/Resolved]
  - COVID-19 [Unknown]
  - Dehydration [Unknown]

NARRATIVE: CASE EVENT DATE: 20210201
